FAERS Safety Report 4720572-7 (Version None)
Quarter: 2005Q3

REPORT INFORMATION
  Report Type: 
  Country: None (occurrence: None)
  Receive Date: 20050721
  Receipt Date: 20050615
  Transmission Date: 20060218
  Serious: Yes (Other)
  Sender: FDA-Public Use
  Company Number: PHRM2005FR01870

PATIENT
  Age: 82 Year
  Sex: Female

DRUGS (2)
  1. ZOMETA [Suspect]
     Indication: METASTASES TO BONE
     Dosage: 4 MG, QMO
     Route: 042
  2. AREDIA [Suspect]
     Indication: METASTASES TO BONE
     Route: 042

REACTIONS (2)
  - BONE INFECTION [None]
  - PAIN IN JAW [None]
